FAERS Safety Report 9717841 (Version 1)
Quarter: 2013Q4

REPORT INFORMATION
  Report Type: Spontaneous
  Country: US (occurrence: US)
  Receive Date: 20131125
  Receipt Date: 20131125
  Transmission Date: 20140711
  Serious: No
  Sender: FDA-Public Use
  Company Number: US-VIVUS-2012V1000267

PATIENT
  Age: 65 Year
  Sex: Male
  Weight: 99.43 kg

DRUGS (3)
  1. QSYMIA 3.75MG/23MG [Suspect]
     Indication: WEIGHT DECREASED
     Dosage: DAILY DOSE: 1 CAPSULE,
     Route: 048
     Dates: start: 20121001
  2. QSYMIA 3.75MG/23MG [Suspect]
     Dosage: DAILY DOSE: 1 CAPSULE,
     Route: 048
     Dates: start: 201211
  3. QSYMIA 7.5MG/46MG [Suspect]
     Indication: WEIGHT DECREASED
     Dosage: DAILY DOSE: 1 CAPSULE,

REACTIONS (6)
  - Feeling abnormal [Unknown]
  - Nervousness [Unknown]
  - Stress [Unknown]
  - Feeling jittery [Unknown]
  - Influenza [Recovered/Resolved]
  - Incorrect dose administered [Not Recovered/Not Resolved]
